FAERS Safety Report 16046171 (Version 1)
Quarter: 2019Q1

REPORT INFORMATION
  Report Type: Spontaneous
  Country: CH (occurrence: CH)
  Receive Date: 20190307
  Receipt Date: 20190307
  Transmission Date: 20190418
  Serious: Yes (Hospitalization)
  Sender: FDA-Public Use
  Company Number: CH-BAYER-2019-040257

PATIENT

DRUGS (8)
  1. ROSUVASTATIN SANDOZ [Concomitant]
     Active Substance: ROSUVASTATIN CALCIUM
  2. RISPERDAL [Concomitant]
     Active Substance: RISPERIDONE
  3. CIPROXIN 500 MG [Suspect]
     Active Substance: CIPROFLOXACIN
     Dosage: 500 MG, BID
     Route: 048
     Dates: start: 201902, end: 20190216
  4. BELOC ZOK [Concomitant]
     Active Substance: METOPROLOL SUCCINATE
  5. SPASMO-URGENIN NEO [Concomitant]
     Active Substance: TROSPIUM
  6. BETMIGA [Concomitant]
     Active Substance: MIRABEGRON
  7. PRADIF T [Concomitant]
     Active Substance: TAMSULOSIN HYDROCHLORIDE
  8. ASPIRIN CARDIO [Concomitant]
     Active Substance: ASPIRIN
     Dosage: UNK
     Route: 048

REACTIONS (2)
  - Disturbance in attention [Recovered/Resolved]
  - Confusional state [Recovered/Resolved]

NARRATIVE: CASE EVENT DATE: 201902
